FAERS Safety Report 18545859 (Version 2)
Quarter: 2021Q1

REPORT INFORMATION
  Report Type: Report from Study
  Country: US (occurrence: US)
  Receive Date: 20201125
  Receipt Date: 20210211
  Transmission Date: 20210419
  Serious: No
  Sender: FDA-Public Use
  Company Number: US-TAKEDA-2020TUS051615

PATIENT
  Sex: Female

DRUGS (2)
  1. 644 (ECALLANTIDE) [Suspect]
     Active Substance: ECALLANTIDE
     Dosage: 30 MILLIGRAM
     Route: 058
     Dates: start: 202008
  2. 644 (ECALLANTIDE) [Suspect]
     Active Substance: ECALLANTIDE
     Indication: HEREDITARY ANGIOEDEMA
     Dosage: UNK
     Route: 065

REACTIONS (1)
  - COVID-19 [Unknown]
